FAERS Safety Report 13077043 (Version 6)
Quarter: 2017Q1

REPORT INFORMATION
  Report Type: Spontaneous
  Country: US (occurrence: US)
  Receive Date: 20161230
  Receipt Date: 20170322
  Transmission Date: 20170428
  Serious: Yes (Other)
  Sender: FDA-Public Use
  Company Number: US-009507513-1612USA014162

PATIENT
  Age: 27 Year
  Sex: Female
  Weight: 103.4 kg

DRUGS (1)
  1. IMPLANON [Suspect]
     Active Substance: ETONOGESTREL
     Indication: CONTRACEPTION
     Dosage: 1 DF, UNK
     Route: 059
     Dates: start: 2009

REACTIONS (5)
  - Complication associated with device [Not Recovered/Not Resolved]
  - Drug dose omission [Unknown]
  - Unintended pregnancy [Not Recovered/Not Resolved]
  - Incorrect drug administration duration [Unknown]
  - Pregnancy with implant contraceptive [Not Recovered/Not Resolved]

NARRATIVE: CASE EVENT DATE: 2012
